FAERS Safety Report 5766233-7 (Version None)
Quarter: 2008Q2

REPORT INFORMATION
  Report Type: 
  Country: None (occurrence: None)
  Receive Date: 20080606
  Receipt Date: 20080523
  Transmission Date: 20081010
  Serious: Yes (Hospitalization)
  Sender: FDA-Public Use
  Company Number: 2008AL005961

PATIENT
  Sex: Male

DRUGS (1)
  1. DIGOXIN [Suspect]
     Dosage: 0.25MG

REACTIONS (3)
  - ARRHYTHMIA [None]
  - RENAL FAILURE [None]
  - URINARY TRACT INFECTION [None]
